FAERS Safety Report 5339198-X (Version None)
Quarter: 2007Q2

REPORT INFORMATION
  Report Type: 
  Country: None (occurrence: None)
  Receive Date: 20070330
  Receipt Date: 20061030
  Transmission Date: 20071010
  Serious: No
  Sender: FDA-Public Use
  Company Number: 2006AC02018

PATIENT
  Age: 47 Year
  Sex: Female

DRUGS (1)
  1. LISINOPRIL [Suspect]
     Indication: HYPERTENSION
     Dosage: 20 MG DAILY PO
     Route: 048
     Dates: start: 20010601, end: 20021101

REACTIONS (1)
  - RENAL FAILURE [None]
